FAERS Safety Report 24097816 (Version 1)
Quarter: 2024Q3

REPORT INFORMATION
  Report Type: Spontaneous
  Country: US (occurrence: US)
  Receive Date: 20240716
  Receipt Date: 20240716
  Transmission Date: 20241016
  Serious: Yes (Other)
  Sender: ABBVIE
  Company Number: HU-RICHTER-2024-GR-006835

PATIENT

DRUGS (1)
  1. VRAYLAR [Suspect]
     Active Substance: CARIPRAZINE
     Indication: Product use in unapproved indication
     Dosage: 1.5 MG
     Route: 048
     Dates: start: 2024

REACTIONS (4)
  - Intentional self-injury [Unknown]
  - Feeling abnormal [Unknown]
  - Product use in unapproved indication [Not Recovered/Not Resolved]
  - Impaired quality of life [Unknown]

NARRATIVE: CASE EVENT DATE: 20240101
